FAERS Safety Report 5046173-1 (Version None)
Quarter: 2006Q3

REPORT INFORMATION
  Report Type: 
  Country: None (occurrence: None)
  Receive Date: 20060710
  Receipt Date: 20060629
  Transmission Date: 20061208
  Serious: Yes (Hospitalization)
  Sender: FDA-Public Use
  Company Number: US-JNJFOC-20060606583

PATIENT
  Sex: Female

DRUGS (8)
  1. REMICADE [Suspect]
     Indication: RHEUMATOID ARTHRITIS
     Route: 042
  2. ENBREL [Concomitant]
  3. FOLIC ACID [Concomitant]
  4. ADVIL [Concomitant]
  5. METHOTREXATE [Concomitant]
  6. FORTEO [Concomitant]
  7. SYNTHROID [Concomitant]
  8. OSCAL [Concomitant]

REACTIONS (1)
  - CEREBELLAR TUMOUR [None]
